FAERS Safety Report 20018202 (Version 1)
Quarter: 2021Q4

REPORT INFORMATION
  Report Type: Spontaneous
  Country: US (occurrence: US)
  Receive Date: 20211101
  Receipt Date: 20211101
  Transmission Date: 20220303
  Serious: No
  Sender: FDA-Public Use
  Company Number: US-SANOFI-00828557

PATIENT
  Age: 35 Year
  Sex: Female

DRUGS (1)
  1. LOVENOX [Suspect]
     Active Substance: ENOXAPARIN SODIUM
     Indication: Pulmonary embolism
     Dosage: 90 MG, Q12H; DRUG TREATMENT DURATION: AROUND 2 WEEKS

REACTIONS (2)
  - Maternal exposure during pregnancy [Unknown]
  - Product storage error [Unknown]
